FAERS Safety Report 8760504 (Version 4)
Quarter: 2013Q2

REPORT INFORMATION
  Report Type: Spontaneous
  Country: GB (occurrence: GB)
  Receive Date: 20120830
  Receipt Date: 20130523
  Transmission Date: 20140414
  Serious: Yes (Hospitalization, Other)
  Sender: FDA-Public Use
  Company Number: PHFR2012GB004687

PATIENT
  Age: 52 Year
  Sex: Female

DRUGS (4)
  1. CLOZARIL [Suspect]
     Indication: SCHIZOPHRENIA
     Dosage: 650 MG, QD
     Route: 048
     Dates: start: 19950630
  2. CLOZARIL [Suspect]
     Dosage: 550 MG, QD
     Route: 048
     Dates: start: 20100707
  3. AMISULPRIDE [Concomitant]
     Indication: SCHIZOPHRENIA
     Dosage: 200 MG, UNK
     Route: 048
     Dates: start: 201007
  4. SERTRALINE [Concomitant]
     Indication: DEPRESSION
     Dosage: 50 MG, UNK
     Route: 048
     Dates: start: 201207

REACTIONS (8)
  - Catatonia [Recovering/Resolving]
  - Fluid intake reduced [Unknown]
  - Decreased appetite [Recovering/Resolving]
  - Schizophrenia [Recovered/Resolved]
  - Mental impairment [Not Recovered/Not Resolved]
  - Antipsychotic drug level increased [Not Recovered/Not Resolved]
  - White blood cell count increased [Recovered/Resolved]
  - Neutrophil count increased [Recovered/Resolved]
